FAERS Safety Report 9487097 (Version 4)
Quarter: 2014Q3

REPORT INFORMATION
  Report Type: Spontaneous
  Country: US (occurrence: None)
  Receive Date: 20130827
  Receipt Date: 20140812
  Transmission Date: 20150326
  Serious: Yes (Hospitalization)
  Sender: FDA-Public Use
  Company Number: 2012US000749

PATIENT
  Age: 39 Year
  Sex: Female
  Weight: 46.5 kg

DRUGS (11)
  1. ARAVA (LEFLUNOMIDE) [Concomitant]
  2. KETOPROFEN (KETOPROFEN) [Concomitant]
  3. METFORMIN (METFORMIN HYDROCHLORIDE) [Concomitant]
  4. PONATINIB [Suspect]
     Active Substance: PONATINIB
     Indication: CHRONIC MYELOID LEUKAEMIA
     Route: 048
     Dates: start: 20110128, end: 20120627
  5. GLIPIZIDE (GLIPIZIDE) [Concomitant]
     Active Substance: GLIPIZIDE
  6. LISINOPRIL (LISINOPRIL DIHYDRATE) [Concomitant]
  7. RITALIN [Concomitant]
     Active Substance: METHYLPHENIDATE HYDROCHLORIDE
  8. HYDROCODONE (HYDROCODONE BITARTRATE) [Concomitant]
  9. PRAVASTATIN [Concomitant]
     Active Substance: PRAVASTATIN\PRAVASTATIN SODIUM
  10. SENOKOT-S (DOCUSATE SODIUM, SENNA ALEXANDRINA) [Concomitant]
  11. ASPIRIN (ACETYLSALICYLIC ACID) [Concomitant]
     Active Substance: ASPIRIN

REACTIONS (8)
  - Hypertension [None]
  - Carotid artery stenosis [None]
  - Contusion [None]
  - Urinary tract infection [None]
  - Cerebrovascular accident [None]
  - Klebsiella infection [None]
  - Transient ischaemic attack [None]
  - Anaemia macrocytic [None]

NARRATIVE: CASE EVENT DATE: 20120627
